FAERS Safety Report 17337626 (Version 2)
Quarter: 2022Q2

REPORT INFORMATION
  Report Type: Spontaneous
  Country: US (occurrence: US)
  Receive Date: 20200129
  Receipt Date: 20220429
  Transmission Date: 20220721
  Serious: Yes (Other)
  Sender: FDA-Public Use
  Company Number: US-SUN PHARMACEUTICAL INDUSTRIES LTD-2020R1-234413

PATIENT
  Age: 89 Year
  Sex: Male
  Weight: 78 kg

DRUGS (3)
  1. ACETAMINOPHEN [Interacting]
     Active Substance: ACETAMINOPHEN
     Indication: Prophylaxis
     Dosage: 1000 MILLIGRAM, QID
     Route: 065
  2. MOXIFLOXACIN [Interacting]
     Active Substance: MOXIFLOXACIN
     Indication: Prophylaxis
     Dosage: 400 MILLIGRAM, 1 DOSE
     Route: 065
  3. WARFARIN [Interacting]
     Active Substance: WARFARIN
     Indication: Coagulopathy
     Dosage: 3 MILLIGRAM, DAILY EXCEPT MONDAYS AND THURSDAYS
     Route: 065

REACTIONS (2)
  - Anticoagulation drug level above therapeutic [Recovered/Resolved]
  - Drug interaction [Unknown]
